FAERS Safety Report 18575463 (Version 1)
Quarter: 2020Q4

REPORT INFORMATION
  Report Type: Spontaneous
  Country: GB (occurrence: GB)
  Receive Date: 20201203
  Receipt Date: 20201203
  Transmission Date: 20210114
  Serious: Yes (Hospitalization)
  Sender: FDA-Public Use
  Company Number: GB-GLAXOSMITHKLINE-GB2020234260

PATIENT
  Age: 65 Year
  Sex: Female
  Weight: 86 kg

DRUGS (13)
  1. TOLTERODINE [Suspect]
     Active Substance: TOLTERODINE
     Indication: MICTURITION URGENCY
     Dosage: 4 MG, QD (EVERY MORNING)
     Route: 048
  2. CARBOCISTEINE [Suspect]
     Active Substance: CARBOCYSTEINE
     Indication: CHRONIC OBSTRUCTIVE PULMONARY DISEASE
     Dosage: 1500 MG, QD
     Route: 048
  3. THEOPHYLLINE [Suspect]
     Active Substance: THEOPHYLLINE ANHYDROUS
     Indication: CHRONIC OBSTRUCTIVE PULMONARY DISEASE
     Dosage: 400 MG, QD (TO BE CONTINUED FOR 4 DAYS BEFORE THEOPHYLLINE LEVELS ARE TAKEN AGAIN.)
     Route: 048
     Dates: start: 20201108
  4. THEOPHYLLINE [Suspect]
     Active Substance: THEOPHYLLINE ANHYDROUS
     Indication: PRODUCT USED FOR UNKNOWN INDICATION
     Dosage: 1200 MG, QD (WITHDRAWN FOR 48 HOURS, RESTARTED AT 200MG TWICE DAILY.)
     Route: 048
     Dates: end: 20201106
  5. CYCLIZINE [Suspect]
     Active Substance: CYCLIZINE
     Indication: NAUSEA
     Dosage: 50 MG, PRN (THREE TIMES A DAY.)
     Route: 048
  6. VANCOMYCIN [Suspect]
     Active Substance: VANCOMYCIN
     Indication: CLOSTRIDIUM DIFFICILE INFECTION
     Dosage: 2000 MG, QD
     Route: 048
     Dates: start: 20200929, end: 20201013
  7. THEOPHYLLINE [Suspect]
     Active Substance: THEOPHYLLINE ANHYDROUS
     Dosage: 200 MG, BID
     Route: 065
     Dates: start: 202011
  8. TIOTROPIUM [Suspect]
     Active Substance: TIOTROPIUM
     Indication: CHRONIC OBSTRUCTIVE PULMONARY DISEASE
     Dosage: 5 ?G, QD (EVERY MORNING)
     Route: 055
  9. SALBUTAMOL [Suspect]
     Active Substance: ALBUTEROL
     Indication: ASTHMA
     Dosage: 800 ?G, QD
     Route: 055
  10. MONTELUKAST [Suspect]
     Active Substance: MONTELUKAST SODIUM
     Indication: ASTHMA
     Dosage: 10 MG, QD AT NIGHT
     Route: 048
  11. SALBUTAMOL [Suspect]
     Active Substance: ALBUTEROL
     Indication: ASTHMA
     Dosage: 10 MG, QD  (AND AS REQUIRED.)
     Route: 055
  12. FOLIC ACID. [Suspect]
     Active Substance: FOLIC ACID
     Indication: PRODUCT USED FOR UNKNOWN INDICATION
     Dosage: 5 MG, QD
     Route: 048
  13. FOSTAIR [Suspect]
     Active Substance: BECLOMETHASONE\FORMOTEROL
     Indication: ASTHMA
     Dosage: 4 DF, QD (PUFFS)
     Route: 055

REACTIONS (5)
  - Dehydration [Unknown]
  - Vomiting [Recovering/Resolving]
  - Diarrhoea [Recovering/Resolving]
  - Palpitations [Unknown]
  - Sinus tachycardia [Recovered/Resolved]

NARRATIVE: CASE EVENT DATE: 20200929
